FAERS Safety Report 22344640 (Version 1)
Quarter: 2023Q2

REPORT INFORMATION
  Report Type: Spontaneous
  Country: JP (occurrence: JP)
  Receive Date: 20230519
  Receipt Date: 20230519
  Transmission Date: 20230721
  Serious: Yes (Other)
  Sender: FDA-Public Use
  Company Number: JP-ELI_LILLY_AND_COMPANY-JP202303009113

PATIENT
  Age: 45 Year
  Sex: Male

DRUGS (6)
  1. CYRAMZA [Suspect]
     Active Substance: RAMUCIRUMAB
     Indication: Gastric cancer
     Dosage: 8 MG/KG, OTHER
     Route: 041
     Dates: start: 20200512, end: 20200526
  2. PACLITAXEL [Suspect]
     Active Substance: PACLITAXEL
     Indication: Gastric cancer
     Dosage: 100 MG/M2, OTHER
     Route: 041
     Dates: start: 20200512, end: 20200526
  3. VONOPRAZAN FUMARATE [Concomitant]
     Active Substance: VONOPRAZAN FUMARATE
     Indication: Gastrooesophageal reflux disease
     Dosage: 20 MG, DAILY
     Route: 048
     Dates: start: 20201113
  4. URSODIOL [Concomitant]
     Active Substance: URSODIOL
     Indication: Liver disorder
     Dosage: 300 MG, TID
     Route: 048
     Dates: start: 20200107, end: 20200521
  5. LOXOPROFEN [Concomitant]
     Active Substance: LOXOPROFEN
     Indication: Cancer pain
     Dosage: 180 MG, TID
     Route: 048
     Dates: start: 20200128, end: 20200521
  6. MAGNESIUM OXIDE [Concomitant]
     Active Substance: MAGNESIUM OXIDE
     Indication: Constipation
     Dosage: 1980 MG, TID
     Route: 048
     Dates: start: 20191029

REACTIONS (3)
  - Disseminated intravascular coagulation [Not Recovered/Not Resolved]
  - Febrile neutropenia [Recovered/Resolved]
  - Vomiting [Unknown]

NARRATIVE: CASE EVENT DATE: 20200512
